FAERS Safety Report 25956928 (Version 1)
Quarter: 2025Q4

REPORT INFORMATION
  Report Type: Spontaneous
  Country: US (occurrence: None)
  Receive Date: 20251023
  Receipt Date: 20251023
  Transmission Date: 20260118
  Serious: Yes (Hospitalization)
  Sender: FDA-CTU
  Company Number: None

PATIENT
  Sex: Male

DRUGS (1)
  1. RETACRIT [Suspect]
     Active Substance: EPOETIN ALFA-EPBX
     Indication: Renal transplant
     Dosage: 4000 UNK - UNKOWN ONCE A WEEK SUBCUTANEOUS?
     Route: 058
     Dates: start: 20250203

REACTIONS (1)
  - Myocardial infarction [None]
